FAERS Safety Report 8757940 (Version 1)
Quarter: 2012Q4

REPORT INFORMATION
  Report Type: 
  Country: US (occurrence: US)
  Receive Date: 20120828
  Receipt Date: 20120828
  Transmission Date: 20130627
  Serious: Yes (Disabling, Other)
  Sender: FDA-Public Use
  Company Number: US-PFIZER INC-2012208242

PATIENT
  Age: 51 Year
  Sex: Female
  Weight: 52.61 kg

DRUGS (5)
  1. LYRICA [Suspect]
     Indication: FIBROMYALGIA
     Dosage: 100 mg, 2x/day
     Route: 048
     Dates: start: 2006, end: 2011
  2. SERTRALINE HCL [Suspect]
     Indication: DEPRESSION
     Dosage: 100 mg, UNK
  3. GABAPENTIN [Suspect]
     Indication: FIBROMYALGIA
     Dosage: 200 mg (100 mg 2 capsules), 4x/day
     Dates: start: 2011
  4. DILTIAZEM [Concomitant]
     Indication: HYPERTENSION
     Dosage: 240 mg, daily
  5. CLONOPIN [Concomitant]
     Indication: ANXIETY
     Dosage: 1 mg, 2x/day

REACTIONS (4)
  - Chronic obstructive pulmonary disease [Not Recovered/Not Resolved]
  - Spinal osteoarthritis [Not Recovered/Not Resolved]
  - Fibromyalgia [Unknown]
  - Drug ineffective [Unknown]
